FAERS Safety Report 7991347-0 (Version None)
Quarter: 2011Q4

REPORT INFORMATION
  Report Type: 
  Country: None (occurrence: None)
  Receive Date: 20111219
  Receipt Date: 20111209
  Transmission Date: 20120403
  Serious: Yes (Hospitalization)
  Sender: FDA-Public Use
  Company Number: US-GILEAD-2011-0048000

PATIENT
  Sex: Male

DRUGS (4)
  1. EMTRICITABINE/TENOFOVIR DISOPROXIL FUMARATE [Suspect]
     Indication: HIV INFECTION
     Dosage: 1 DF, QD
     Route: 048
     Dates: start: 20100406
  2. ACETAMINOPHEN [Concomitant]
     Indication: PYREXIA
     Dosage: 500 MG, BID
     Route: 048
     Dates: start: 20111201
  3. EFAVIRENZ [Suspect]
     Indication: HIV INFECTION
     Dosage: 600 MG, QD
     Route: 048
     Dates: start: 20100406
  4. CEFIXIME [Concomitant]
     Indication: PYREXIA
     Dosage: 200 MG, BID
     Route: 048
     Dates: start: 20111201, end: 20111203

REACTIONS (1)
  - BRONCHOPNEUMONIA [None]
